FAERS Safety Report 24185589 (Version 1)
Quarter: 2024Q3

REPORT INFORMATION
  Report Type: Spontaneous
  Country: US (occurrence: US)
  Receive Date: 20240807
  Receipt Date: 20240807
  Transmission Date: 20241016
  Serious: Yes (Other)
  Sender: KYOWA
  Company Number: US-KYOWAKIRIN-2024KK018832

PATIENT

DRUGS (6)
  1. NOURIANZ [Suspect]
     Active Substance: ISTRADEFYLLINE
     Indication: Parkinson^s disease
     Dosage: 20 MG, QD (ONCE DAILY)
     Route: 048
     Dates: start: 20230112, end: 20240528
  2. PROPRANOLOL [Concomitant]
     Active Substance: PROPRANOLOL HYDROCHLORIDE
     Indication: Product used for unknown indication
     Dosage: 80 MG, ER
     Route: 065
  3. SILODOSIN [Concomitant]
     Active Substance: SILODOSIN
     Indication: Product used for unknown indication
     Dosage: 4 MG
     Route: 065
  4. SERTRALINE [Concomitant]
     Active Substance: SERTRALINE HYDROCHLORIDE
     Indication: Product used for unknown indication
     Dosage: 50 MG
     Route: 065
  5. ROPINIROLE [Concomitant]
     Active Substance: ROPINIROLE
     Indication: Product used for unknown indication
     Dosage: 0.5 MG
     Route: 065
  6. BETHANECHOL [Concomitant]
     Active Substance: BETHANECHOL
     Indication: Product used for unknown indication
     Dosage: 10 MG
     Route: 065

REACTIONS (1)
  - Tardive dyskinesia [Not Recovered/Not Resolved]

NARRATIVE: CASE EVENT DATE: 20240701
